FAERS Safety Report 9299434 (Version 1)
Quarter: 2013Q2

REPORT INFORMATION
  Report Type: Spontaneous
  Country: SE (occurrence: SE)
  Receive Date: 20130521
  Receipt Date: 20130521
  Transmission Date: 20140414
  Serious: Yes (Other)
  Sender: FDA-Public Use
  Company Number: SE-009507513-1305SWE010769

PATIENT
  Sex: Female

DRUGS (1)
  1. TRYPTIZOL [Suspect]
     Indication: PAIN
     Dosage: 10 MG, QD
     Route: 048

REACTIONS (3)
  - Intervertebral disc operation [Unknown]
  - Off label use [Unknown]
  - Pain [Unknown]
